FAERS Safety Report 20241234 (Version 1)
Quarter: 2021Q4

REPORT INFORMATION
  Report Type: Spontaneous
  Country: US (occurrence: US)
  Receive Date: 20211228
  Receipt Date: 20211228
  Transmission Date: 20220303
  Serious: Yes (Other)
  Sender: FDA-Public Use
  Company Number: US-PURDUE-USA-2020-0221193

PATIENT
  Sex: Male

DRUGS (5)
  1. OXYCONTIN [Suspect]
     Active Substance: OXYCODONE HYDROCHLORIDE
     Indication: Intervertebral disc protrusion
     Dosage: UNKNOWN
     Route: 048
     Dates: start: 2003
  2. OXYCODONE HYDROCHLORIDE [Suspect]
     Active Substance: OXYCODONE HYDROCHLORIDE
     Indication: Intervertebral disc protrusion
     Dosage: UNKNOWN
     Route: 048
     Dates: start: 2003
  3. ACETAMINOPHEN\OXYCODONE HYDROCHLORIDE [Suspect]
     Active Substance: ACETAMINOPHEN\OXYCODONE HYDROCHLORIDE
     Indication: Intervertebral disc protrusion
     Dosage: UNKNOWN
     Route: 048
     Dates: start: 2003
  4. HYDROCODONE BITARTRATE AND ACETAMINOPHEN [Suspect]
     Active Substance: ACETAMINOPHEN\HYDROCODONE BITARTRATE
     Indication: Intervertebral disc protrusion
     Dosage: UNKNOWN
     Route: 048
     Dates: start: 2003
  5. TRAMADOL [Suspect]
     Active Substance: TRAMADOL
     Indication: Intervertebral disc protrusion
     Dosage: UNKNOWN
     Route: 048
     Dates: start: 2003

REACTIONS (2)
  - Overdose [Unknown]
  - Drug dependence [Unknown]
